FAERS Safety Report 6121320-9 (Version None)
Quarter: 2009Q1

REPORT INFORMATION
  Report Type: 
  Country: None (occurrence: None)
  Receive Date: 20090312
  Receipt Date: 20090226
  Transmission Date: 20090719
  Serious: Yes (Death, Hospitalization)
  Sender: FDA-Public Use
  Company Number: 2009000618

PATIENT
  Age: 82 Year
  Sex: Male

DRUGS (6)
  1. ERLOTINIB (ERLOTINIB) (TABLET) (ERLOTINIB) [Suspect]
     Indication: NON-SMALL CELL LUNG CANCER
     Dosage: (150 MG, QD), ORAL
     Route: 048
     Dates: start: 20080702, end: 20080704
  2. DEXAMETHASONE [Concomitant]
  3. ORAMORPH SR [Concomitant]
  4. LISINOPRIL [Concomitant]
  5. SIMVASTATIN [Concomitant]
  6. GLICLAZIDE (GLICLAZIDE) [Concomitant]

REACTIONS (3)
  - DISEASE PROGRESSION [None]
  - PNEUMONIA ASPIRATION [None]
  - SPUTUM DISCOLOURED [None]
